FAERS Safety Report 6373762-4 (Version None)
Quarter: 2009Q3

REPORT INFORMATION
  Report Type: 
  Country: None (occurrence: None)
  Receive Date: 20090924
  Receipt Date: 20090506
  Transmission Date: 20100115
  Serious: Yes (Life-Threatening)
  Sender: FDA-Public Use
  Company Number: US-ASTRAZENECA-2009UW11556

PATIENT
  Age: 73 Year
  Sex: Male

DRUGS (4)
  1. SEROQUEL [Suspect]
     Route: 048
     Dates: start: 20090316
  2. SEROQUEL [Suspect]
     Dosage: 50 MG EVERY 6 HOURS AS NEEDED
     Route: 048
  3. ATIVAN [Concomitant]
  4. HALDOL [Concomitant]

REACTIONS (1)
  - NEUROLEPTIC MALIGNANT SYNDROME [None]
